FAERS Safety Report 14527110 (Version 1)
Quarter: 2018Q1

REPORT INFORMATION
  Report Type: Spontaneous
  Country: US (occurrence: US)
  Receive Date: 20180213
  Receipt Date: 20180213
  Transmission Date: 20180509
  Serious: No
  Sender: FDA-Public Use
  Company Number: US-TEVA-2018-US-852534

PATIENT
  Sex: Female

DRUGS (2)
  1. DESVENLAFAXINE SODIUM [Suspect]
     Active Substance: DESVENLAFAXINE
     Indication: ANXIETY
     Route: 065
     Dates: start: 2016
  2. DESVENLAFAXINE SODIUM [Suspect]
     Active Substance: DESVENLAFAXINE
     Route: 065

REACTIONS (3)
  - Balance disorder [Unknown]
  - Musculoskeletal stiffness [Unknown]
  - Dysarthria [Unknown]

NARRATIVE: CASE EVENT DATE: 2016
